FAERS Safety Report 17287676 (Version 2)
Quarter: 2020Q1

REPORT INFORMATION
  Report Type: Spontaneous
  Country: US (occurrence: US)
  Receive Date: 20200120
  Receipt Date: 20200226
  Transmission Date: 20200409
  Serious: No
  Sender: FDA-Public Use
  Company Number: US-GLAXOSMITHKLINE-US2020AMR009420

PATIENT
  Age: 50 Year
  Sex: Female

DRUGS (1)
  1. NICODERM CQ [Suspect]
     Active Substance: NICOTINE
     Indication: SMOKING CESSATION THERAPY
     Dosage: 1 PATCH ADAY (PATCH USED 2 TO 3 WEEKS AGO)
     Dates: start: 2019

REACTIONS (3)
  - Application site pruritus [Recovered/Resolved]
  - Application site rash [Recovering/Resolving]
  - Application site irritation [Recovered/Resolved]

NARRATIVE: CASE EVENT DATE: 20191118
